FAERS Safety Report 9458865 (Version 2)
Quarter: 2013Q3

REPORT INFORMATION
  Report Type: Spontaneous
  Country: US (occurrence: US)
  Receive Date: 20130814
  Receipt Date: 20130919
  Transmission Date: 20140515
  Serious: Yes (Other)
  Sender: FDA-Public Use
  Company Number: US-PFIZER INC-2013234897

PATIENT
  Age: 61 Year
  Sex: Female
  Weight: 82.54 kg

DRUGS (9)
  1. HYDROCODO/APAP [Concomitant]
     Dosage: UNK
  2. LYRICA [Suspect]
     Indication: FIBROMYALGIA
     Dosage: UNK
     Dates: start: 20130721
  3. WARFARIN [Concomitant]
     Dosage: UNK
  4. NARATRIPTAN [Concomitant]
     Dosage: UNK
  5. NITROFURANTOIN [Concomitant]
     Dosage: UNK
  6. MORPHINE SULFATE [Concomitant]
     Dosage: UNK
  7. ZOLPIDEM [Concomitant]
     Dosage: UNK
  8. ALPRAZOLAM [Concomitant]
     Dosage: UNK
  9. SERTRALINE [Concomitant]
     Dosage: UNK

REACTIONS (3)
  - Fall [Unknown]
  - Dizziness [Unknown]
  - Joint injury [Unknown]
